FAERS Safety Report 17731591 (Version 1)
Quarter: 2020Q2

REPORT INFORMATION
  Report Type: Spontaneous
  Country: DE (occurrence: DE)
  Receive Date: 20200430
  Receipt Date: 20200430
  Transmission Date: 20200714
  Serious: Yes (Hospitalization)
  Sender: FDA-Public Use
  Company Number: DE-TEVA-2020-DE-1228274

PATIENT
  Age: 77 Year
  Sex: Male

DRUGS (17)
  1. EPLERENON [Suspect]
     Active Substance: EPLERENONE
     Dosage: 25 MILLIGRAM DAILY;  1-0-0-0
  2. TORASEMID [Suspect]
     Active Substance: TORSEMIDE
     Dosage: 10 MILLIGRAM DAILY;  1-0-0-0
  3. CALCIUM 500 MG HEXAL [Concomitant]
     Dosage: 500 MILLIGRAM DAILY; 1-0-0-0
  4. MYCOPHENOLSAURE [Suspect]
     Active Substance: MYCOPHENOLIC ACID
     Dosage: 1000 MILLIGRAM DAILY; 1-0-1-0
  5. SIROLIMUS. [Suspect]
     Active Substance: SIROLIMUS
     Dosage: .5 MILLIGRAM DAILY;  0-1-0-0
  6. MAGNESIUM 121,525MG [Concomitant]
     Dosage: 2 DOSAGE FORMS DAILY; 121.5 MG, 1-0-1-0
  7. EZETIMIB [Concomitant]
     Active Substance: EZETIMIBE
     Dosage: 10 MILLIGRAM DAILY; 1-0-0-0
  8. LEVEMIR FLEXPEN 100EINHEITEN/ML [Concomitant]
     Dosage: 16 DOSAGE FORMS DAILY; 0-0-0-16, PRE-FILLED SYRINGES
  9. CLOPIDOGREL [Concomitant]
     Active Substance: CLOPIDOGREL BISULFATE
     Dosage: 75 MILLIGRAM DAILY;  1-0-0-0
  10. KALINOR [Concomitant]
     Dosage: 2 DOSAGE FORMS DAILY; 1-0-1-0
  11. MYCOPHENOLSAURE [Suspect]
     Active Substance: MYCOPHENOLIC ACID
     Dosage: 500 MILLIGRAM DAILY; 1-0-1-0
  12. LACTULOSE. [Suspect]
     Active Substance: LACTULOSE
     Dosage: 3.34 G, NEED
  13. PANTOPRAZOL [Concomitant]
     Active Substance: PANTOPRAZOLE SODIUM
     Dosage: 40 MILLIGRAM DAILY;  1-0-0-0
  14. ACETYLSALICYLSAURE [Concomitant]
     Active Substance: ASPIRIN
     Dosage: 100 MILLIGRAM DAILY;  1-0-0-0
  15. ROSUVASTATIN. [Concomitant]
     Active Substance: ROSUVASTATIN
     Dosage: 10 MILLIGRAM DAILY; 0-0-1-0
  16. BISOPROLOL [Concomitant]
     Active Substance: BISOPROLOL
     Dosage: 5 MILLIGRAM DAILY;  1-0-0-0
  17. ALLOPURINOL. [Concomitant]
     Active Substance: ALLOPURINOL
     Dosage: 150 MILLIGRAM DAILY; 300 MG, 0.5-0-0-0

REACTIONS (7)
  - Confusional state [Unknown]
  - Dyspnoea [Unknown]
  - Electrolyte imbalance [Unknown]
  - General physical health deterioration [Unknown]
  - Asthenia [Unknown]
  - Nausea [Unknown]
  - Pain [Unknown]
